FAERS Safety Report 9053106 (Version 3)
Quarter: 2013Q3

REPORT INFORMATION
  Report Type: Spontaneous
  Country: US (occurrence: US)
  Receive Date: 20130208
  Receipt Date: 20130805
  Transmission Date: 20140515
  Serious: No
  Sender: FDA-Public Use
  Company Number: US-BIOGENIDEC-2013BI010510

PATIENT
  Sex: Female

DRUGS (1)
  1. TYSABRI [Suspect]
     Indication: MULTIPLE SCLEROSIS
     Route: 042
     Dates: start: 20080916

REACTIONS (5)
  - Psoriasis [Not Recovered/Not Resolved]
  - Scratch [Not Recovered/Not Resolved]
  - Skin lesion [Not Recovered/Not Resolved]
  - Pruritus [Not Recovered/Not Resolved]
  - Urinary tract infection [Recovered/Resolved]
